FAERS Safety Report 12666226 (Version 3)
Quarter: 2019Q3

REPORT INFORMATION
  Report Type: Spontaneous
  Country: US (occurrence: US)
  Receive Date: 20160818
  Receipt Date: 20190801
  Transmission Date: 20191004
  Serious: No
  Sender: FDA-Public Use
  Company Number: US-JAZZ-2016-US-005610

PATIENT
  Sex: Female

DRUGS (12)
  1. AZO CRANBERRY [Concomitant]
     Active Substance: DIETARY SUPPLEMENT
  2. DIPHENHYDRAMINE HYDROCHLORIDE. [Concomitant]
     Active Substance: DIPHENHYDRAMINE HYDROCHLORIDE
  3. XYREM [Suspect]
     Active Substance: SODIUM OXYBATE
     Indication: NARCOLEPSY
     Dosage: 2.25 G, BID
     Route: 048
     Dates: start: 201510, end: 201510
  4. XYREM [Suspect]
     Active Substance: SODIUM OXYBATE
     Dosage: 4.5 G, BID
     Route: 048
     Dates: start: 2015
  5. FISH OIL [Concomitant]
     Active Substance: FISH OIL
  6. PREVACID [Concomitant]
     Active Substance: LANSOPRAZOLE
  7. IBUPROFEN. [Concomitant]
     Active Substance: IBUPROFEN
  8. XYREM [Suspect]
     Active Substance: SODIUM OXYBATE
     Indication: CATAPLEXY
     Dosage: DOSE ADJUSTMENT
     Route: 048
  9. XYREM [Suspect]
     Active Substance: SODIUM OXYBATE
     Dosage: 2.25 G, BID
     Route: 048
     Dates: start: 20190719, end: 20190721
  10. CARAFATE [Concomitant]
     Active Substance: SUCRALFATE
  11. CLOMIPRAMINE HYDROCHLORIDE. [Concomitant]
     Active Substance: CLOMIPRAMINE HYDROCHLORIDE
  12. LYRICA [Concomitant]
     Active Substance: PREGABALIN

REACTIONS (3)
  - Fibromyalgia [Unknown]
  - Pain in extremity [Not Recovered/Not Resolved]
  - Arthritis [Not Recovered/Not Resolved]
